FAERS Safety Report 7492711-9 (Version None)
Quarter: 2011Q2

REPORT INFORMATION
  Report Type: 
  Country: None (occurrence: None)
  Receive Date: 20110519
  Receipt Date: 20110413
  Transmission Date: 20111010
  Serious: Yes (Other)
  Sender: FDA-Public Use
  Company Number: AR-AMGEN-ARGSP2011020068

PATIENT
  Age: 57 Year
  Sex: Female
  Weight: 80 kg

DRUGS (4)
  1. ENBREL [Suspect]
     Dosage: 50 MG, 2X/WEEK
     Route: 058
     Dates: end: 20110201
  2. ENBREL [Suspect]
     Indication: PSORIATIC ARTHROPATHY
     Dosage: 50 MG, 2X/WEEK
     Route: 058
     Dates: start: 20080115, end: 20101001
  3. LEVOTHYROXINE SODIUM [Concomitant]
     Dosage: UNK
  4. VERPAMIL HCL [Concomitant]
     Dosage: UNK

REACTIONS (2)
  - FACIAL SPASM [None]
  - PSORIATIC ARTHROPATHY [None]
